FAERS Safety Report 7576195-8 (Version None)
Quarter: 2011Q2

REPORT INFORMATION
  Report Type: 
  Country: None (occurrence: None)
  Receive Date: 20110628
  Receipt Date: 20110602
  Transmission Date: 20111010
  Serious: Yes (Other)
  Sender: FDA-Public Use
  Company Number: US-BAYER-201037445NA

PATIENT
  Age: 35 Year
  Sex: Female
  Weight: 97.959 kg

DRUGS (9)
  1. YASMIN [Suspect]
     Indication: CONTRACEPTION
     Dosage: UNK
     Dates: start: 20061211, end: 20070501
  2. RAMIPRIL [Concomitant]
     Dosage: 10 MG, UNK
     Route: 048
  3. ZEGERID [Concomitant]
     Route: 048
  4. YAZ [Suspect]
     Indication: CONTRACEPTION
     Dosage: UNK
     Route: 048
     Dates: start: 20061211, end: 20070501
  5. HUMALOG [Concomitant]
     Dosage: UNK UNK, PRN
  6. YASMIN [Suspect]
     Indication: MENSTRUATION IRREGULAR
     Dosage: UNK
     Dates: start: 20090213, end: 20091201
  7. LANTUS [Concomitant]
  8. YAZ [Suspect]
     Indication: MENSTRUATION IRREGULAR
     Dosage: UNK
     Dates: start: 20090213, end: 20091201
  9. HYDROCHLOROTHIAZIDE [Concomitant]

REACTIONS (3)
  - CHOLECYSTECTOMY [None]
  - PAIN [None]
  - CHOLECYSTITIS CHRONIC [None]
